FAERS Safety Report 5825816-6 (Version None)
Quarter: 2008Q3

REPORT INFORMATION
  Report Type: 
  Country: None (occurrence: None)
  Receive Date: 20080729
  Receipt Date: 20080724
  Transmission Date: 20090109
  Serious: Yes (Death, Hospitalization)
  Sender: FDA-Public Use
  Company Number: US-JNJFOC-20080706290

PATIENT
  Sex: Male
  Weight: 95.26 kg

DRUGS (2)
  1. FENTANYL TRANSDERMAL SYSTEM [Suspect]
     Indication: NEURALGIA
     Route: 062
  2. MORPHINE [Concomitant]
     Indication: PAIN
     Route: 048

REACTIONS (4)
  - CARDIOPULMONARY FAILURE [None]
  - PNEUMONIA [None]
  - PNEUMONIA ASPIRATION [None]
  - WEIGHT DECREASED [None]
